FAERS Safety Report 9200211 (Version 2)
Quarter: 2013Q2

REPORT INFORMATION
  Report Type: Report from Study
  Country: US (occurrence: US)
  Receive Date: 20130329
  Receipt Date: 20130402
  Transmission Date: 20140414
  Serious: Yes (Hospitalization)
  Sender: FDA-Public Use
  Company Number: US-JNJFOC-20130315668

PATIENT
  Age: 12 Year
  Sex: Male
  Weight: 58.7 kg

DRUGS (9)
  1. REMICADE [Suspect]
     Indication: CROHN^S DISEASE
     Route: 042
     Dates: start: 20130303
  2. REMICADE [Suspect]
     Indication: CROHN^S DISEASE
     Route: 042
     Dates: start: 20110112
  3. OMEPRAZOLE [Concomitant]
     Route: 065
  4. PIMECROLIMUS [Concomitant]
     Route: 065
  5. FLUTICASONE [Concomitant]
     Route: 065
  6. LORATADINE [Concomitant]
     Route: 065
  7. IBUPROFEN [Concomitant]
     Route: 065
  8. HYDROXYZINE [Concomitant]
     Route: 065
  9. MULTIVITAMINS [Concomitant]
     Route: 065

REACTIONS (1)
  - Crohn^s disease [Recovered/Resolved]
